FAERS Safety Report 4871147-0 (Version None)
Quarter: 2005Q4

REPORT INFORMATION
  Report Type: 
  Country: None (occurrence: None)
  Receive Date: 20051229
  Receipt Date: 20051206
  Transmission Date: 20060501
  Serious: Yes (Life-Threatening, Hospitalization, Other)
  Sender: FDA-Public Use
  Company Number: EWC051046091

PATIENT
  Age: 71 Year
  Sex: Female
  Weight: 98 kg

DRUGS (8)
  1. OLANZAPINE [Suspect]
     Indication: SCHIZOPHRENIA
     Dosage: 5 MG, 2/D, ORAL
     Route: 048
     Dates: start: 20050314, end: 20050929
  2. ZUCLOPENTHIXOL (ZUCLOPENTHIXOL) [Concomitant]
  3. LITHIUM CARBONATE [Concomitant]
  4. OXAZEPAM [Concomitant]
  5. CARBAMAZEPINE [Concomitant]
  6. CISORDINOL (CLOPENTHIXOL HYDROCHLORIDE) [Concomitant]
  7. LEVOTHYROXINE SODIUM [Concomitant]
  8. PROMETHAZINE [Concomitant]

REACTIONS (7)
  - CHEYNE-STOKES RESPIRATION [None]
  - COMA [None]
  - DIABETES MELLITUS [None]
  - PULMONARY EMBOLISM [None]
  - RENAL FAILURE [None]
  - SHOCK [None]
  - WEIGHT DECREASED [None]
